FAERS Safety Report 6278618-3 (Version None)
Quarter: 2009Q3

REPORT INFORMATION
  Report Type: 
  Country: None (occurrence: None)
  Receive Date: 20090722
  Receipt Date: 20090406
  Transmission Date: 20100115
  Serious: No
  Sender: FDA-Public Use
  Company Number: US-BAUSCH-2009BL001511

PATIENT
  Age: 38 Year
  Sex: Female
  Weight: 71 kg

DRUGS (1)
  1. OPCON-A [Suspect]
     Route: 047
     Dates: start: 20090312, end: 20090312

REACTIONS (3)
  - MYDRIASIS [None]
  - VISION BLURRED [None]
  - WRONG DRUG ADMINISTERED [None]
